FAERS Safety Report 9266067 (Version 2)
Quarter: 2013Q2

REPORT INFORMATION
  Report Type: Spontaneous
  Country: US (occurrence: US)
  Receive Date: 20130501
  Receipt Date: 20130510
  Transmission Date: 20140414
  Serious: Yes (Life-Threatening, Hospitalization)
  Sender: FDA-Public Use
  Company Number: US-009507513-1304USA016535

PATIENT
  Age: 73 Year
  Sex: Male

DRUGS (1)
  1. PRINIVIL [Suspect]
     Indication: HYPERTENSION
     Route: 048

REACTIONS (2)
  - Swollen tongue [Recovered/Resolved]
  - Swelling face [Recovered/Resolved]
